FAERS Safety Report 12020436 (Version 1)
Quarter: 2016Q1

REPORT INFORMATION
  Report Type: Report from Study
  Country: US (occurrence: US)
  Receive Date: 20160206
  Receipt Date: 20160206
  Transmission Date: 20160526
  Serious: No
  Sender: FDA-Public Use
  Company Number: US-ABBVIE-15K-163-1465250-00

PATIENT
  Age: 35 Year
  Sex: Female

DRUGS (1)
  1. HUMIRA [Suspect]
     Active Substance: ADALIMUMAB
     Indication: RHEUMATOID ARTHRITIS
     Route: 065

REACTIONS (6)
  - Acne [Not Recovered/Not Resolved]
  - Rash pustular [Unknown]
  - Tenderness [Unknown]
  - Erythema [Unknown]
  - Localised infection [Not Recovered/Not Resolved]
  - Skin warm [Unknown]

NARRATIVE: CASE EVENT DATE: 20150911
